FAERS Safety Report 25644133 (Version 1)
Quarter: 2025Q3

REPORT INFORMATION
  Report Type: Other
  Country: US (occurrence: US)
  Receive Date: 20250805
  Receipt Date: 20250805
  Transmission Date: 20251020
  Serious: Yes (Hospitalization, Other)
  Sender: ANI
  Company Number: US-ANIPHARMA-023934

PATIENT
  Age: 22 Year
  Sex: Male

DRUGS (4)
  1. PENICILLAMINE [Suspect]
     Active Substance: PENICILLAMINE
     Indication: Hepato-lenticular degeneration
     Route: 048
  2. ZINC SULFATE [Concomitant]
     Active Substance: ZINC SULFATE
     Indication: Hepato-lenticular degeneration
  3. URSODIOL [Concomitant]
     Active Substance: URSODIOL
     Indication: Hepato-lenticular degeneration
  4. PIPERACILLIN SODIUM\TAZOBACTAM SODIUM [Concomitant]
     Active Substance: PIPERACILLIN SODIUM\TAZOBACTAM SODIUM
     Indication: Antibiotic therapy

REACTIONS (4)
  - Cytopenia [Unknown]
  - Retinal haemorrhage [Unknown]
  - Myelosuppression [Unknown]
  - Aplastic anaemia [Unknown]
